FAERS Safety Report 8018605-8 (Version None)
Quarter: 2012Q1

REPORT INFORMATION
  Report Type: 
  Country: None (occurrence: None)
  Receive Date: 20120103
  Receipt Date: 20111220
  Transmission Date: 20120608
  Serious: Yes (Hospitalization, Other)
  Sender: FDA-Public Use
  Company Number: JP-UCBSA-047993

PATIENT
  Age: 81 Year
  Sex: Female

DRUGS (4)
  1. OLOPATADINE HCL [Suspect]
     Indication: PRURITUS
     Route: 048
     Dates: start: 20111128, end: 20111202
  2. ATARAX [Suspect]
     Indication: PRURITUS
     Route: 048
     Dates: start: 20111121, end: 20111128
  3. XYZAL [Suspect]
     Indication: PRURITUS
     Route: 048
     Dates: start: 20111110, end: 20111114
  4. CELESTAMINE TAB [Suspect]
     Indication: PRURITUS
     Route: 048
     Dates: start: 20111114, end: 20111121

REACTIONS (20)
  - BLOOD ALBUMIN DECREASED [None]
  - ASPARTATE AMINOTRANSFERASE INCREASED [None]
  - BLOOD LACTATE DEHYDROGENASE INCREASED [None]
  - EPSTEIN-BARR VIRUS ANTIBODY POSITIVE [None]
  - FAECES PALE [None]
  - ALLERGIC HEPATITIS [None]
  - PROTHROMBIN TIME PROLONGED [None]
  - MALAISE [None]
  - PROTHROMBIN TIME RATIO DECREASED [None]
  - BLOOD BILIRUBIN INCREASED [None]
  - GAMMA-GLUTAMYLTRANSFERASE INCREASED [None]
  - CHROMATURIA [None]
  - LIVER DISORDER [None]
  - JAUNDICE [None]
  - PROTEIN TOTAL DECREASED [None]
  - BILIRUBIN CONJUGATED INCREASED [None]
  - ALANINE AMINOTRANSFERASE INCREASED [None]
  - BLOOD ALKALINE PHOSPHATASE INCREASED [None]
  - DECREASED APPETITE [None]
  - ACTIVATED PARTIAL THROMBOPLASTIN TIME PROLONGED [None]
